FAERS Safety Report 5099024-3 (Version None)
Quarter: 2006Q3

REPORT INFORMATION
  Report Type: 
  Country: None (occurrence: None)
  Receive Date: 20060907
  Receipt Date: 20060831
  Transmission Date: 20061208
  Serious: Yes (Hospitalization)
  Sender: FDA-Public Use
  Company Number: US-ABBOTT-06P-163-0342945-00

PATIENT
  Sex: Female
  Weight: 150 kg

DRUGS (12)
  1. HUMIRA [Suspect]
     Indication: RHEUMATOID ARTHRITIS
     Route: 058
     Dates: start: 20050101, end: 20060401
  2. HUMIRA [Suspect]
     Route: 058
     Dates: start: 20060701
  3. METHOTREXATE [Concomitant]
     Indication: RHEUMATOID ARTHRITIS
  4. DICLOFENAC [Concomitant]
     Indication: RHEUMATOID ARTHRITIS
  5. HYDROXYCHLOROQUINE PHOSPHATE [Concomitant]
     Indication: RHEUMATOID ARTHRITIS
  6. TRAMADOL HCL [Concomitant]
     Indication: PAIN
  7. FOLIC ACID [Concomitant]
     Indication: ARTHRITIS
  8. CITALOPRAM HYDROBROMIDE [Concomitant]
     Indication: ANTIDEPRESSANT THERAPY
  9. POTASSIUM [Concomitant]
     Indication: SWELLING
  10. FUROSEMIDE [Concomitant]
     Indication: SWELLING
  11. METOPROLOL TARTRATE [Concomitant]
     Indication: BLOOD PRESSURE
  12. CYCLOBENZAPRINE HCL [Concomitant]
     Indication: ARTHRITIS

REACTIONS (2)
  - HYSTERECTOMY [None]
  - PANCREATITIS [None]
